FAERS Safety Report 23047746 (Version 1)
Quarter: 2023Q4

REPORT INFORMATION
  Report Type: Report from Study
  Country: US (occurrence: US)
  Receive Date: 20231010
  Receipt Date: 20231010
  Transmission Date: 20240109
  Serious: Yes (Hospitalization)
  Sender: FDA-Public Use
  Company Number: US-ABBVIE-5443002

PATIENT
  Sex: Female

DRUGS (1)
  1. SKYRIZI [Suspect]
     Active Substance: RISANKIZUMAB-RZAA
     Indication: Psoriasis
     Route: 058
     Dates: start: 20230228

REACTIONS (5)
  - Pancreatitis [Recovered/Resolved]
  - Hot flush [Unknown]
  - Kidney infection [Recovered/Resolved]
  - Skin infection [Unknown]
  - Oesophageal infection [Unknown]

NARRATIVE: CASE EVENT DATE: 20230101
